FAERS Safety Report 8853993 (Version 3)
Quarter: 2013Q2

REPORT INFORMATION
  Report Type: Spontaneous
  Country: BR (occurrence: BR)
  Receive Date: 20121022
  Receipt Date: 20130506
  Transmission Date: 20140414
  Serious: Yes (Other)
  Sender: FDA-Public Use
  Company Number: PHHY2012BR093242

PATIENT
  Age: 83 Year
  Sex: Female

DRUGS (3)
  1. ACLASTA [Suspect]
     Indication: OSTEOPOROSIS
     Dosage: 5 MG, YEARLY
     Route: 042
     Dates: start: 20111003
  2. ACLASTA [Suspect]
     Dosage: 5 MG, UNK
     Route: 042
     Dates: start: 20121011
  3. ADDERA D3 [Concomitant]
     Dosage: 20 DRP, QW
     Route: 048
     Dates: start: 2011

REACTIONS (8)
  - Urinary tract pain [Recovered/Resolved]
  - Haematuria [Recovered/Resolved]
  - Osteoarthritis [Unknown]
  - Fall [Recovered/Resolved]
  - Urinary incontinence [Not Recovered/Not Resolved]
  - Decreased appetite [Recovered/Resolved]
  - Spinal pain [Not Recovered/Not Resolved]
  - Pain in extremity [Not Recovered/Not Resolved]
